FAERS Safety Report 17000293 (Version 1)
Quarter: 2019Q4

REPORT INFORMATION
  Report Type: Spontaneous
  Country: DE (occurrence: DE)
  Receive Date: 20191106
  Receipt Date: 20191106
  Transmission Date: 20200122
  Serious: Yes (Disabling)
  Sender: FDA-Public Use
  Company Number: DE-PFIZER INC-2019414019

PATIENT
  Age: 61 Year
  Sex: Female
  Weight: 95 kg

DRUGS (7)
  1. XELJANZ [Suspect]
     Active Substance: TOFACITINIB CITRATE
     Indication: RHEUMATOID ARTHRITIS
     Dosage: 5 MG, 2X/DAY
     Dates: start: 201711, end: 201909
  2. ESTROGEN [Concomitant]
     Active Substance: ESTROGENS
     Dosage: UNK
  3. METEX [METHOTREXATE SODIUM] [Concomitant]
     Active Substance: METHOTREXATE SODIUM
     Dosage: 17.5 MG, WEEKLY
     Route: 058
  4. VIGANTOLETTEN [Concomitant]
     Active Substance: CHOLECALCIFEROL
     Dosage: 1000 IU, UNK
  5. ATORVASTATIN [Concomitant]
     Active Substance: ATORVASTATIN
     Dosage: 5 MG, UNK
     Dates: start: 201908
  6. FOLIC ACID. [Concomitant]
     Active Substance: FOLIC ACID
     Dosage: 10 MG, WEEKLY THE DAY AFTER METHOTREXATE SODIUM
  7. PREDNISOLON [PREDNISOLONE] [Concomitant]
     Active Substance: PREDNISOLONE
     Dosage: 5 MG, UNK

REACTIONS (1)
  - Retinal vein thrombosis [Not Recovered/Not Resolved]

NARRATIVE: CASE EVENT DATE: 20190716
